FAERS Safety Report 7282057-6 (Version None)
Quarter: 2011Q1

REPORT INFORMATION
  Report Type: 
  Country: None (occurrence: None)
  Receive Date: 20110208
  Receipt Date: 20110127
  Transmission Date: 20110831
  Serious: Yes (Hospitalization)
  Sender: FDA-Public Use
  Company Number: JP-ASTRAZENECA-2011SE02548

PATIENT
  Age: 79 Year
  Sex: Female
  Weight: 39 kg

DRUGS (9)
  1. PREDONINE [Suspect]
     Indication: INTERSTITIAL LUNG DISEASE
     Route: 048
     Dates: start: 20101116, end: 20110103
  2. PREDONINE [Suspect]
     Route: 042
     Dates: start: 20110104
  3. GASTER [Suspect]
     Route: 048
     Dates: start: 20101116, end: 20110103
  4. NEUTROGIN [Suspect]
     Indication: GRANULOCYTOPENIA
     Route: 058
     Dates: start: 20110110, end: 20110114
  5. MEROPENEM [Suspect]
     Indication: INFECTION PROPHYLAXIS
     Route: 042
     Dates: start: 20101214, end: 20110106
  6. OMEPRAL [Suspect]
     Indication: ULCER
     Route: 042
     Dates: start: 20110108, end: 20110109
  7. VANCOMYCIN [Suspect]
     Indication: INFECTION PROPHYLAXIS
     Route: 042
     Dates: start: 20110112, end: 20110116
  8. ZANTAC [Suspect]
     Indication: ULCER
     Route: 042
     Dates: start: 20110104, end: 20110106
  9. LANSOPRAZOLE-OD [Suspect]
     Indication: ULCER
     Route: 048
     Dates: start: 20110107, end: 20110107

REACTIONS (1)
  - GRANULOCYTOPENIA [None]
